FAERS Safety Report 18716097 (Version 3)
Quarter: 2025Q3

REPORT INFORMATION
  Report Type: Report from Study
  Country: US (occurrence: US)
  Receive Date: 20210108
  Receipt Date: 20250721
  Transmission Date: 20251021
  Serious: Yes (Other)
  Sender: NOVARTIS
  Company Number: NVSC2021US002342

PATIENT
  Age: 74 Year
  Sex: Female
  Weight: 50 kg

DRUGS (6)
  1. LAMPRENE [Suspect]
     Active Substance: CLOFAZIMINE
     Indication: Mycobacterium avium complex infection
     Route: 048
     Dates: start: 20200804
  2. LAMPRENE [Suspect]
     Active Substance: CLOFAZIMINE
     Dosage: 50 MG, QD
     Route: 048
     Dates: start: 20200908, end: 20200918
  3. LAMPRENE [Suspect]
     Active Substance: CLOFAZIMINE
     Route: 048
     Dates: end: 20200923
  4. AZITHROMYCIN [Concomitant]
     Active Substance: AZITHROMYCIN
     Indication: Mycobacterium avium complex infection
     Dosage: 250 MG, QD
     Route: 048
     Dates: start: 20200512, end: 20200923
  5. AMIKACIN [Concomitant]
     Active Substance: AMIKACIN
     Indication: Mycobacterium avium complex infection
     Route: 055
     Dates: start: 20200512, end: 20200923
  6. SYNTHROID [Concomitant]
     Active Substance: LEVOTHYROXINE SODIUM
     Indication: Hyperthyroidism
     Dosage: 75 UG, QD
     Route: 048

REACTIONS (14)
  - Hepatotoxicity [Recovering/Resolving]
  - Malaise [Unknown]
  - Pruritus [Recovered/Resolved]
  - Decreased appetite [Unknown]
  - Nausea [Recovered/Resolved]
  - Vomiting [Recovered/Resolved]
  - Chromaturia [Unknown]
  - Lethargy [Unknown]
  - Pyrexia [Unknown]
  - Chills [Unknown]
  - Dry skin [Unknown]
  - Weight decreased [Recovered/Resolved]
  - Fatigue [Recovered/Resolved]
  - Hepatomegaly [Unknown]

NARRATIVE: CASE EVENT DATE: 20200918
